FAERS Safety Report 25589330 (Version 1)
Quarter: 2025Q3

REPORT INFORMATION
  Report Type: Spontaneous
  Country: ID (occurrence: ID)
  Receive Date: 20250722
  Receipt Date: 20250722
  Transmission Date: 20251021
  Serious: Yes (Death, Life-Threatening, Hospitalization, Other)
  Sender: Steriscience PTE
  Company Number: None

PATIENT
  Age: 5 Year
  Sex: Male

DRUGS (3)
  1. MEROPENEM [Suspect]
     Active Substance: MEROPENEM
     Indication: Product used for unknown indication
     Route: 065
  2. MEROPENEM [Suspect]
     Active Substance: MEROPENEM
     Route: 065
  3. PHENYTOIN [Suspect]
     Active Substance: PHENYTOIN
     Indication: Product used for unknown indication
     Route: 065

REACTIONS (9)
  - Obliterative bronchiolitis [Fatal]
  - Respiratory failure [Fatal]
  - Pseudomonas infection [Fatal]
  - Acinetobacter infection [Fatal]
  - Bacterial infection [Fatal]
  - Hypokalaemia [Fatal]
  - Hypochloraemia [Fatal]
  - Febrile convulsion [Fatal]
  - Stevens-Johnson syndrome [Fatal]
